FAERS Safety Report 8165386-3 (Version None)
Quarter: 2012Q1

REPORT INFORMATION
  Report Type: 
  Country: None (occurrence: None)
  Receive Date: 20120103
  Receipt Date: 20110928
  Transmission Date: 20120608
  Serious: No
  Sender: FDA-Public Use
  Company Number: AE-2011-001906

PATIENT
  Age: 49 Year
  Sex: Female
  Weight: 71.6683 kg

DRUGS (4)
  1. PEGASYS [Concomitant]
  2. ACETAMINOPHEN [Concomitant]
  3. INCIVEK [Suspect]
     Dosage: 2571.4286 MG (750 MG, 1 IN 7 HR), ORAL
     Route: 048
     Dates: start: 20110921
  4. RIBAVIRIN [Concomitant]

REACTIONS (15)
  - FLUSHING [None]
  - OCULAR HYPERAEMIA [None]
  - VULVOVAGINAL DRYNESS [None]
  - VISION BLURRED [None]
  - FEELING ABNORMAL [None]
  - ASTHENOPIA [None]
  - HAEMORRHOIDS [None]
  - ERUCTATION [None]
  - MOOD SWINGS [None]
  - DEPRESSED MOOD [None]
  - ANAL PRURITUS [None]
  - CONSTIPATION [None]
  - ANXIETY [None]
  - VULVOVAGINAL PRURITUS [None]
  - DYSPEPSIA [None]
